FAERS Safety Report 9235789 (Version 1)
Quarter: 2013Q2

REPORT INFORMATION
  Report Type: Spontaneous
  Country: US (occurrence: US)
  Receive Date: 20130417
  Receipt Date: 20130417
  Transmission Date: 20140414
  Serious: Yes (Hospitalization, Other)
  Sender: FDA-Public Use
  Company Number: PHEH2013US008336

PATIENT
  Sex: Male

DRUGS (12)
  1. MYFORTIC [Suspect]
     Dosage: 360 MG, QID
  2. PROTONIX [Concomitant]
     Dosage: UNK
  3. LASIX [Concomitant]
     Dosage: UNK UKN, UNK
  4. RAPAMUNE [Concomitant]
     Dosage: UNK UKN, UNK
  5. MAGNESIUM PLUS                     /02977401/ [Concomitant]
     Dosage: UNK UKN, UNK
  6. XIFAXAN [Concomitant]
     Dosage: UNK UKN, UNK
  7. ACTOS [Concomitant]
     Dosage: UNK UKN, UNK
  8. TRADJENTA [Concomitant]
     Dosage: UNK UKN, UNK
  9. VITAMIN D [Concomitant]
     Dosage: UNK UKN, UNK
  10. LEVOTHYROXINE [Concomitant]
     Dosage: UNK UKN, UNK
  11. ENALAPRIL [Concomitant]
     Dosage: UNK UKN, UNK
  12. ONDASETRON [Concomitant]
     Dosage: UNK UKN, UNK

REACTIONS (3)
  - Hypoglycaemia [Recovering/Resolving]
  - Diabetes mellitus [Recovering/Resolving]
  - Transplant rejection [Unknown]
